FAERS Safety Report 10033932 (Version 1)
Quarter: 2014Q1

REPORT INFORMATION
  Report Type: Spontaneous
  Country: IN (occurrence: IN)
  Receive Date: 20140325
  Receipt Date: 20140325
  Transmission Date: 20141002
  Serious: Yes (Hospitalization)
  Sender: FDA-Public Use
  Company Number: IN-009507513-1403IND010579

PATIENT
  Age: 55 Year
  Sex: Female

DRUGS (2)
  1. NANDROLONE DECANOATE [Suspect]
     Indication: ASTHENIA
     Dosage: 100 MG, UNK
     Route: 030
  2. NANDROLONE DECANOATE [Suspect]
     Indication: SOMATOFORM DISORDER

REACTIONS (8)
  - Mental disorder [Recovered/Resolved]
  - Abnormal behaviour [Recovered/Resolved]
  - Hirsutism [Not Recovered/Not Resolved]
  - Androgenetic alopecia [Not Recovered/Not Resolved]
  - Muscle hypertrophy [Not Recovered/Not Resolved]
  - Dysphonia [Not Recovered/Not Resolved]
  - Rash [Unknown]
  - Drug administration error [Unknown]
